FAERS Safety Report 7555794-3 (Version None)
Quarter: 2011Q2

REPORT INFORMATION
  Report Type: 
  Country: None (occurrence: None)
  Receive Date: 20110618
  Receipt Date: 20110602
  Transmission Date: 20111010
  Serious: Yes (Death, Hospitalization, Other)
  Sender: FDA-Public Use
  Company Number: JP-BAYER-201014789BYL

PATIENT
  Age: 77 Year
  Sex: Female
  Weight: 43 kg

DRUGS (32)
  1. WARFARIN SODIUM [Concomitant]
     Dosage: UNK
     Route: 048
     Dates: end: 20100802
  2. CARVEDILOL [Concomitant]
     Dosage: 5 MG, QD
     Route: 048
     Dates: start: 20100805
  3. CARVEDILOL [Concomitant]
     Dosage: 2.500 MG, BID
     Route: 048
     Dates: start: 20100927
  4. SUNRYTHM [Concomitant]
     Indication: ATRIAL FIBRILLATION
     Dosage: 25 MG, QD
     Route: 048
     Dates: start: 20100811, end: 20100814
  5. BLOOD AND RELATED PRODUCTS [Concomitant]
     Dosage: UNK
     Route: 042
     Dates: start: 20100809, end: 20100811
  6. WARFARIN SODIUM [Concomitant]
     Dosage: 1 MG, QD
     Route: 048
     Dates: start: 20100823
  7. NIKORANMART [Concomitant]
     Dosage: UNK
     Route: 048
  8. NIKORANMART [Concomitant]
     Dosage: 5 MG, BID
     Route: 048
     Dates: start: 20100927
  9. OXAROL [Concomitant]
     Dosage: UNK
     Route: 042
  10. TRANSAMIN [Concomitant]
     Indication: GASTROINTESTINAL HAEMORRHAGE
     Dosage: UNK
     Route: 041
     Dates: start: 20100802, end: 20100806
  11. FUTHAN [Concomitant]
     Dosage: DAILY DOSE 100 MG
     Route: 042
     Dates: start: 20100804, end: 20100806
  12. DIGITALIS GLYCOSIDES [Concomitant]
     Indication: TACHYCARDIA
     Dosage: UNK
     Route: 042
     Dates: start: 20100804, end: 20100805
  13. WARFARIN SODIUM [Concomitant]
     Dosage: 1 MG, QD
     Route: 048
     Dates: start: 20100828
  14. MIRACLID [Concomitant]
     Indication: BLOOD AMYLASE INCREASED
     Dosage: DAILY DOSE 10 MIU
     Route: 042
     Dates: start: 20100803, end: 20100806
  15. MINERALIN [Concomitant]
     Dosage: UNK
     Route: 042
     Dates: start: 20100811, end: 20100819
  16. OTSUKA MV [Concomitant]
     Dosage: UNK
     Route: 042
     Dates: start: 20100811, end: 20100819
  17. NESPO [Concomitant]
     Route: 042
  18. KAYTWO N [Concomitant]
     Indication: GASTROINTESTINAL HAEMORRHAGE
     Dosage: UNK
     Route: 041
     Dates: start: 20100802, end: 20100806
  19. ASPIRIN [Suspect]
     Indication: AORTIC VALVE DISEASE MIXED
     Dosage: 100 MG, QD
     Route: 048
     Dates: start: 20100101, end: 20100802
  20. D ALFA [Suspect]
     Indication: RENAL FAILURE CHRONIC
     Dosage: 0.250 ?G, QD
     Route: 048
     Dates: end: 20100802
  21. CEFMETAZON [Concomitant]
     Dosage: 1 G, QD
     Route: 042
     Dates: start: 20100806, end: 20100811
  22. BLOOD AND RELATED PRODUCTS [Concomitant]
     Dosage: UNK
     Route: 042
     Dates: start: 20100830, end: 20100831
  23. DOBUPUM [Concomitant]
     Indication: PROCEDURAL HYPOTENSION
     Dosage: UNK
     Route: 042
     Dates: start: 20100806
  24. KIDMIN [Concomitant]
     Dosage: UNK
     Route: 042
     Dates: start: 20100811, end: 20100819
  25. HICALIQ [Concomitant]
     Dosage: UNK
     Route: 042
     Dates: start: 20100811, end: 20100819
  26. ADONA [Concomitant]
     Indication: GASTROINTESTINAL HAEMORRHAGE
     Dosage: UNK
     Route: 041
     Dates: start: 20100802, end: 20100806
  27. KALIMATE [Concomitant]
     Indication: BLOOD POTASSIUM INCREASED
     Dosage: DAILY DOSE 30 G
     Route: 054
     Dates: start: 20100803
  28. THYRADIN [Concomitant]
     Dosage: DAILY DOSE 50 ?G
     Route: 048
     Dates: start: 20100804, end: 20100805
  29. POTASSIUM CHLORIDE [Concomitant]
     Dosage: UNK
     Route: 042
     Dates: start: 20100811, end: 20100819
  30. PRIMOBOLAN-DEPOT INJ [Suspect]
     Indication: APLASTIC ANAEMIA
     Dosage: SINCE BEFORE OVER 1 YEAR
     Route: 048
     Dates: end: 20100802
  31. PROTECADIN [Suspect]
     Indication: GASTRIC ULCER
     Dosage: 10 MG, QD
     Route: 048
     Dates: start: 20080201, end: 20100802
  32. VERAPAMIL HCL [Concomitant]
     Indication: TACHYCARDIA
     Dosage: UNK
     Route: 042
     Dates: start: 20100804, end: 20100805

REACTIONS (6)
  - HEPATITIS ACUTE [None]
  - HEPATIC FUNCTION ABNORMAL [None]
  - GASTROINTESTINAL HAEMORRHAGE [None]
  - DEHYDRATION [None]
  - GENERAL PHYSICAL HEALTH DETERIORATION [None]
  - DEPRESSED LEVEL OF CONSCIOUSNESS [None]
